FAERS Safety Report 16300670 (Version 2)
Quarter: 2019Q2

REPORT INFORMATION
  Report Type: Spontaneous
  Country: US (occurrence: US)
  Receive Date: 20190510
  Receipt Date: 20190531
  Transmission Date: 20190711
  Serious: No
  Sender: FDA-Public Use
  Company Number: US-FRESENIUS MEDICAL CARE RENAL THERAPIES GROUP-FMC-1905-000535

PATIENT
  Sex: Female
  Weight: 77.1 kg

DRUGS (1)
  1. DELFLEX [Suspect]
     Active Substance: CALCIUM CHLORIDE\DEXTROSE\MAGNESIUM CHLORIDE\SODIUM CHLORIDE\SODIUM LACTATE
     Indication: END STAGE RENAL DISEASE
     Dosage: CYCLES OF 2200 ML, DWELL TIME 1 HOUR, 18 MINUTES, LAST FILL OF 1000 ML
     Route: 033

REACTIONS (1)
  - Abdominal hernia repair [Recovering/Resolving]

NARRATIVE: CASE EVENT DATE: 2019
